FAERS Safety Report 4625717-5 (Version None)
Quarter: 2005Q1

REPORT INFORMATION
  Report Type: 
  Country: None (occurrence: None)
  Receive Date: 20050330
  Receipt Date: 20050315
  Transmission Date: 20050727
  Serious: Yes (Other)
  Sender: FDA-Public Use
  Company Number: JP-2005-004160

PATIENT
  Age: 47 Year
  Sex: Male

DRUGS (4)
  1. FLUDARABINE PHOSPHATE [Suspect]
     Indication: NON-HODGKIN'S LYMPHOMA
     Dates: start: 20040101
  2. FLUDARABINE PHOSPHATE [Suspect]
     Indication: NON-HODGKIN'S LYMPHOMA
     Dates: start: 20040101
  3. MITOXANTRONE [Concomitant]
  4. DEXAMETHASONE [Concomitant]

REACTIONS (1)
  - IDIOPATHIC THROMBOCYTOPENIC PURPURA [None]
